FAERS Safety Report 24063741 (Version 2)
Quarter: 2024Q3

REPORT INFORMATION
  Report Type: Spontaneous
  Country: US (occurrence: US)
  Receive Date: 20240709
  Receipt Date: 20240716
  Transmission Date: 20241016
  Serious: No
  Sender: PIRAMAL
  Company Number: US-PCCINC-2024-PPL-000507

PATIENT

DRUGS (1)
  1. GABLOFEN [Suspect]
     Active Substance: BACLOFEN
     Indication: Muscle spasticity
     Dosage: 74.95 MICROGRAM/DAY
     Route: 037

REACTIONS (2)
  - Incision site impaired healing [Recovered/Resolved]
  - Product use issue [Unknown]
